FAERS Safety Report 7304818-7 (Version None)
Quarter: 2011Q1

REPORT INFORMATION
  Report Type: 
  Country: None (occurrence: None)
  Receive Date: 20110222
  Receipt Date: 20110215
  Transmission Date: 20110831
  Serious: Yes (Death)
  Sender: FDA-Public Use
  Company Number: US-PFIZER INC-2011033493

PATIENT
  Sex: Male

DRUGS (3)
  1. NEORAL [Concomitant]
     Indication: RENAL TRANSPLANT
     Dosage: UNKNOWN
  2. SANDIMMUNE [Concomitant]
     Indication: RENAL TRANSPLANT
     Dosage: UNKNOWN
  3. RAPAMUNE [Suspect]
     Dosage: UNKNOWN

REACTIONS (1)
  - DEATH [None]
